FAERS Safety Report 14773550 (Version 2)
Quarter: 2018Q2

REPORT INFORMATION
  Report Type: Spontaneous
  Country: US (occurrence: US)
  Receive Date: 20180418
  Receipt Date: 20180525
  Transmission Date: 20180711
  Serious: No
  Sender: FDA-Public Use
  Company Number: US-HORIZON-DUE-PEN-0101-2018

PATIENT
  Age: 62 Year
  Sex: Male

DRUGS (3)
  1. DUEXIS [Suspect]
     Active Substance: FAMOTIDINE\IBUPROFEN
     Indication: BACK PAIN
     Dosage: 1 TABLET TID, TOOK 9 TABLETS IN TOTAL
     Route: 048
  2. PENNSAID [Suspect]
     Active Substance: DICLOFENAC SODIUM
     Indication: BACK PAIN
     Dosage: 2 PUMPS (40MG) BID, TOOK 1 SAMPLE IN TOTAL
     Route: 061
  3. LISINOPRIL. [Concomitant]
     Active Substance: LISINOPRIL
     Indication: BLOOD PRESSURE ABNORMAL

REACTIONS (3)
  - Drug ineffective [Unknown]
  - Drug ineffective for unapproved indication [Unknown]
  - Off label use [Unknown]
